FAERS Safety Report 9893508 (Version 1)
Quarter: 2014Q1

REPORT INFORMATION
  Report Type: Spontaneous
  Country: US (occurrence: US)
  Receive Date: 20140213
  Receipt Date: 20140213
  Transmission Date: 20141002
  Serious: Yes (Death, Other)
  Sender: FDA-Public Use
  Company Number: PHHY2014US016254

PATIENT
  Age: 10 Year
  Sex: Male

DRUGS (9)
  1. CICLOSPORIN [Suspect]
     Indication: PROPHYLAXIS AGAINST GRAFT VERSUS HOST DISEASE
  2. MYCOPHENOLATE MOFETIL [Suspect]
     Indication: PROPHYLAXIS AGAINST GRAFT VERSUS HOST DISEASE
  3. ALEMTUZUMAB [Concomitant]
  4. FLUDARABINE [Concomitant]
     Dosage: 30 MG/M2, UNK
  5. MELPHALAN [Concomitant]
     Dosage: 70 MG/M2, UNK
  6. ACETAMINOPHEN [Concomitant]
     Dosage: 15 MG/KG, UNK
     Route: 048
  7. DIPHENHYDRAMINE [Concomitant]
  8. HEMOGLOBIN [Concomitant]
  9. PLATELETS [Concomitant]

REACTIONS (3)
  - Haemorrhage intracranial [Fatal]
  - Cytomegalovirus viraemia [Unknown]
  - Graft versus host disease [Unknown]
